FAERS Safety Report 14997940 (Version 1)
Quarter: 2018Q2

REPORT INFORMATION
  Report Type: Spontaneous
  Country: US (occurrence: US)
  Receive Date: 20180611
  Receipt Date: 20180611
  Transmission Date: 20180711
  Serious: No
  Sender: FDA-Public Use
  Company Number: US-FOUNDATIONCONSUMERHC-2018-US-007734

PATIENT
  Age: 28 Year
  Sex: Female
  Weight: 53.07 kg

DRUGS (5)
  1. ADDERALL [Concomitant]
     Active Substance: AMPHETAMINE ASPARTATE\AMPHETAMINE SULFATE\DEXTROAMPHETAMINE SACCHARATE\DEXTROAMPHETAMINE SULFATE
  2. PLAN B ONE-STEP [Suspect]
     Active Substance: LEVONORGESTREL
     Dosage: 1.5MG
     Route: 048
     Dates: start: 20180507, end: 20180507
  3. PLAN B ONE-STEP [Suspect]
     Active Substance: LEVONORGESTREL
     Dosage: 1.5MG
     Route: 048
     Dates: start: 20180506, end: 20180506
  4. PLAN B ONE-STEP [Suspect]
     Active Substance: LEVONORGESTREL
     Dosage: 1.5MG
     Route: 048
     Dates: start: 20180506, end: 20180506
  5. EMETROL [Concomitant]
     Active Substance: DEXTROSE\FRUCTOSE\PHOSPHORIC ACID
     Dates: start: 20180506

REACTIONS (3)
  - Nausea [Recovered/Resolved]
  - Vomiting [Recovered/Resolved]
  - Intentional product misuse [Recovered/Resolved]

NARRATIVE: CASE EVENT DATE: 20180506
